FAERS Safety Report 9932920 (Version 1)
Quarter: 2014Q1

REPORT INFORMATION
  Report Type: Spontaneous
  Country: US (occurrence: US)
  Receive Date: 20140228
  Receipt Date: 20140228
  Transmission Date: 20141002
  Serious: No
  Sender: FDA-Public Use
  Company Number: US-ABBVIE-13P-163-1077423-00

PATIENT
  Age: 53 Year
  Sex: Male
  Weight: 111.23 kg

DRUGS (11)
  1. ANDROGEL [Suspect]
     Indication: BLOOD TESTOSTERONE DECREASED
     Dosage: 1 PACKET UNKNOWN STRENGTH
     Route: 061
     Dates: start: 20130402
  2. LANTUS [Concomitant]
     Indication: DIABETES MELLITUS
  3. GLIPIZIDE/METFORMIN [Concomitant]
     Indication: DIABETES MELLITUS
  4. LISINOPRIL [Concomitant]
     Indication: HYPERTENSION
  5. METOPROLOL [Concomitant]
     Indication: HYPERTENSION
  6. SIMVASTATIN [Concomitant]
     Indication: BLOOD CHOLESTEROL INCREASED
  7. LYRICA [Concomitant]
     Indication: NEUROPATHY PERIPHERAL
  8. TYLENOL [Concomitant]
     Indication: NEURALGIA
  9. MULTIVITAMIN [Concomitant]
     Indication: SUPPLEMENTATION THERAPY
  10. VITAMIN B12 [Concomitant]
     Indication: SUPPLEMENTATION THERAPY
  11. ASPIRIN [Concomitant]
     Indication: PRODUCT USED FOR UNKNOWN INDICATION

REACTIONS (5)
  - Skin burning sensation [Recovering/Resolving]
  - Wrong technique in drug usage process [Recovered/Resolved]
  - Accidental exposure to product [Recovered/Resolved]
  - Pruritus [Recovering/Resolving]
  - Swelling [Recovering/Resolving]
